FAERS Safety Report 9727820 (Version 1)
Quarter: 2013Q4

REPORT INFORMATION
  Report Type: Spontaneous
  Country: SK (occurrence: SK)
  Receive Date: 20131204
  Receipt Date: 20131204
  Transmission Date: 20140711
  Serious: Yes (Death)
  Sender: FDA-Public Use
  Company Number: SK-ROCHE-1308393

PATIENT
  Age: 50 Year
  Sex: Male
  Weight: 100 kg

DRUGS (7)
  1. ACTILYSE [Suspect]
     Indication: CEREBROVASCULAR ACCIDENT
     Route: 042
  2. TRITACE [Concomitant]
     Indication: HYPERTENSION
     Route: 048
  3. MONOSAN [Concomitant]
     Route: 048
  4. TENAXUM [Concomitant]
     Indication: HYPERTENSION
     Route: 048
  5. ATORIS [Concomitant]
     Indication: HYPERCHOLESTEROLAEMIA
     Route: 048
  6. METFORMIN [Concomitant]
     Route: 048
  7. HUMALOG [Concomitant]
     Indication: DIABETES MELLITUS
     Route: 058

REACTIONS (2)
  - Brain stem haemorrhage [Fatal]
  - Blood pressure increased [Fatal]
